FAERS Safety Report 7455248 (Version 3)
Quarter: 2017Q1

REPORT INFORMATION
  Report Type: Spontaneous
  Country: JP (occurrence: JP)
  Receive Date: 20100706
  Receipt Date: 20170228
  Transmission Date: 20170429
  Serious: Yes (Other)
  Sender: FDA-Public Use
  Company Number: JP-BRISTOL-MYERS SQUIBB COMPANY-15176472

PATIENT
  Age: 32 Year
  Sex: Male
  Weight: 65 kg

DRUGS (3)
  1. VEPESID [Suspect]
     Active Substance: ETOPOSIDE
     Indication: EXTRAGONADAL PRIMARY SEMINOMA (PURE)
     Dosage: 160 MG, UNK
     Route: 065
  2. BLEO [Suspect]
     Active Substance: BLEOMYCIN HYDROCHLORIDE
     Indication: EXTRAGONADAL PRIMARY SEMINOMA (PURE)
     Dosage: 30 MG, UNK
     Route: 065
  3. RANDA [Suspect]
     Active Substance: CISPLATIN
     Indication: EXTRAGONADAL PRIMARY SEMINOMA (PURE)
     Dosage: 140 MG, UNK
     Route: 065

REACTIONS (2)
  - Azoospermia [Unknown]
  - Varicocele [Unknown]
